FAERS Safety Report 8990817 (Version 1)
Quarter: 2012Q4

REPORT INFORMATION
  Report Type: Spontaneous
  Country: US (occurrence: None)
  Receive Date: 20121226
  Receipt Date: 20121226
  Transmission Date: 20130627
  Serious: Yes (Other)
  Sender: FDA-Public Use
  Company Number: None

PATIENT
  Age: 69 Year
  Sex: Male
  Weight: 108.86 kg

DRUGS (1)
  1. CIPRO [Suspect]
     Indication: UTI
     Dosage: 500 mg 2x daily po
     Route: 048
     Dates: start: 20121219, end: 20121221

REACTIONS (7)
  - Dizziness [None]
  - Palpitations [None]
  - Heart rate irregular [None]
  - Arthralgia [None]
  - Tendon pain [None]
  - Malaise [None]
  - Decreased activity [None]
